FAERS Safety Report 15614688 (Version 1)
Quarter: 2018Q4

REPORT INFORMATION
  Report Type: Spontaneous
  Country: US (occurrence: US)
  Receive Date: 20181113
  Receipt Date: 20181113
  Transmission Date: 20190205
  Serious: No
  Sender: FDA-Public Use
  Company Number: US-009507513-1810USA011246

PATIENT
  Sex: Male

DRUGS (2)
  1. ELOCON [Suspect]
     Active Substance: MOMETASONE FUROATE
     Indication: DRY SKIN
  2. ELOCON [Suspect]
     Active Substance: MOMETASONE FUROATE
     Indication: SKIN EXFOLIATION
     Dosage: ^EVERY DAY FOR 40 YEARS^, QD
     Route: 061
     Dates: start: 1970

REACTIONS (2)
  - Product availability issue [Unknown]
  - Circumstance or information capable of leading to medication error [Unknown]
